FAERS Safety Report 18142590 (Version 2)
Quarter: 2020Q3

REPORT INFORMATION
  Report Type: Spontaneous
  Country: SK (occurrence: SK)
  Receive Date: 20200812
  Receipt Date: 20200902
  Transmission Date: 20201103
  Serious: Yes (Death, Other)
  Sender: FDA-Public Use
  Company Number: SK-TEVA-2020-SK-1814595

PATIENT
  Sex: Male

DRUGS (3)
  1. RITUXIMAB. [Suspect]
     Active Substance: RITUXIMAB
     Indication: DIFFUSE LARGE B-CELL LYMPHOMA REFRACTORY
     Route: 065
  2. POLIVY [Suspect]
     Active Substance: POLATUZUMAB VEDOTIN-PIIQ
     Indication: DIFFUSE LARGE B-CELL LYMPHOMA REFRACTORY
     Dosage: (THIRD LINE, 1.8 KG/KG)
     Route: 042
     Dates: start: 20200710
  3. BENDAMUSTINE HYDROCHLORIDE. [Suspect]
     Active Substance: BENDAMUSTINE HYDROCHLORIDE
     Indication: DIFFUSE LARGE B-CELL LYMPHOMA REFRACTORY
     Dosage: (THIRD LINE)
     Route: 042

REACTIONS (3)
  - Product use in unapproved indication [Unknown]
  - Diffuse large B-cell lymphoma refractory [Fatal]
  - Superior vena cava syndrome [Unknown]
